FAERS Safety Report 5608108-X (Version None)
Quarter: 2008Q1

REPORT INFORMATION
  Report Type: 
  Country: None (occurrence: None)
  Receive Date: 20080130
  Receipt Date: 20080124
  Transmission Date: 20080703
  Serious: Yes (Other)
  Sender: FDA-Public Use
  Company Number: US-JNJFOC-20080106563

PATIENT
  Sex: Female
  Weight: 34.02 kg

DRUGS (2)
  1. CONCERTA [Suspect]
     Route: 048
  2. CONCERTA [Suspect]
     Indication: ATTENTION DEFICIT/HYPERACTIVITY DISORDER
     Route: 048

REACTIONS (7)
  - ASTHENIA [None]
  - CONVULSION [None]
  - GAIT DISTURBANCE [None]
  - HEADACHE [None]
  - MIGRAINE [None]
  - PARAESTHESIA [None]
  - VOMITING [None]
